FAERS Safety Report 6042344-6 (Version None)
Quarter: 2009Q1

REPORT INFORMATION
  Report Type: 
  Country: None (occurrence: None)
  Receive Date: 20090116
  Receipt Date: 20090105
  Transmission Date: 20090719
  Serious: Yes (Other)
  Sender: FDA-Public Use
  Company Number: NL-PFIZER INC-2009151974

PATIENT

DRUGS (1)
  1. ALPRAZOLAM [Suspect]
     Route: 048
     Dates: start: 20040101

REACTIONS (5)
  - DYSPHAGIA [None]
  - DYSPNOEA [None]
  - GAIT DISTURBANCE [None]
  - MYALGIA [None]
  - SPEECH DISORDER [None]
